FAERS Safety Report 5175382-6 (Version None)
Quarter: 2006Q4

REPORT INFORMATION
  Report Type: 
  Country: None (occurrence: None)
  Receive Date: 20061215
  Receipt Date: 20061205
  Transmission Date: 20070319
  Serious: Yes (Life-Threatening, Hospitalization, Other)
  Sender: FDA-Public Use
  Company Number: 2006UW27223

PATIENT
  Age: 712 Month
  Sex: Male

DRUGS (6)
  1. CRESTOR [Suspect]
     Indication: BLOOD CHOLESTEROL INCREASED
     Route: 048
     Dates: start: 20010101, end: 20061203
  2. ALTACE [Suspect]
     Indication: BLOOD PRESSURE MANAGEMENT
     Route: 048
     Dates: end: 20060701
  3. ASPIRIN [Concomitant]
     Indication: CARDIOVASCULAR DISORDER
     Route: 048
  4. MULTI-VITAMINS [Concomitant]
     Indication: VITAMIN SUPPLEMENTATION
     Dosage: 1 TABLET DAILY
     Route: 048
  5. CALCIUM CITRATE W/ VITAMIN D [Concomitant]
     Indication: SUPPLEMENTATION THERAPY
     Dosage: 250 MG / 200 U DAILY
     Route: 048
  6. HYDRODIURIL [Concomitant]
     Indication: BLOOD PRESSURE MANAGEMENT
     Route: 048

REACTIONS (3)
  - ANGIONEUROTIC OEDEMA [None]
  - ANGIOPLASTY [None]
  - DYSPHONIA [None]
